FAERS Safety Report 5106654-9 (Version None)
Quarter: 2006Q3

REPORT INFORMATION
  Report Type: 
  Country: None (occurrence: None)
  Receive Date: 20060731
  Receipt Date: 20051018
  Transmission Date: 20061208
  Serious: Yes (Other)
  Sender: FDA-Public Use
  Company Number: US-JNJFOC-20050701936

PATIENT
  Age: 58 Year
  Sex: Male

DRUGS (10)
  1. RISPERDAL [Suspect]
     Indication: BIPOLAR DISORDER
     Dosage: 1.5 MG, 2 IN 1 DAY, ORAL
     Route: 048
     Dates: start: 20041015
  2. DEPAKOTE [Concomitant]
  3. LAMICTAL [Concomitant]
  4. TOPAMAX [Concomitant]
  5. WELLBUTRIN [Concomitant]
  6. CELEXA [Concomitant]
  7. ABILIFY [Concomitant]
  8. SERPQUEL (QUETIAPINE FUMARATE) [Concomitant]
  9. ALPRAZOLAM [Concomitant]
  10. VITAMIN B6 [Concomitant]

REACTIONS (4)
  - AMNESIA [None]
  - GAIT DISTURBANCE [None]
  - MANIA [None]
  - TARDIVE DYSKINESIA [None]
